FAERS Safety Report 9161689 (Version 2)
Quarter: 2013Q3

REPORT INFORMATION
  Report Type: Spontaneous
  Country: US (occurrence: US)
  Receive Date: 20130314
  Receipt Date: 20130717
  Transmission Date: 20140515
  Serious: No
  Sender: FDA-Public Use
  Company Number: US-009507513-1303USA005366

PATIENT
  Age: 28 Year
  Sex: Female
  Weight: 79.82 kg

DRUGS (2)
  1. IMPLANON [Suspect]
     Indication: CONTRACEPTION
     Dosage: EVERY 3 YEARS
     Route: 030
     Dates: start: 20100729, end: 20130416
  2. ANTIMICROBIAL (UNSPECIFIED) [Concomitant]

REACTIONS (4)
  - Device difficult to use [Recovered/Resolved]
  - Medical device complication [Recovered/Resolved]
  - Device deployment issue [Recovered/Resolved]
  - Incorrect route of drug administration [Recovered/Resolved]
